FAERS Safety Report 10707274 (Version 1)
Quarter: 2015Q1

REPORT INFORMATION
  Report Type: Report from Study
  Country: SE (occurrence: SE)
  Receive Date: 20150113
  Receipt Date: 20150113
  Transmission Date: 20150721
  Serious: Yes (Death)
  Sender: FDA-Public Use
  Company Number: SE-ABBVIE-15P-150-1331344-00

PATIENT
  Age: 60 Year
  Sex: Male

DRUGS (2)
  1. DUODOPA [Suspect]
     Active Substance: CARBIDOPA\LEVODOPA
     Indication: PARKINSON^S DISEASE
     Route: 065
     Dates: start: 20130227
  2. MADOPARK [Concomitant]
     Indication: PRODUCT USED FOR UNKNOWN INDICATION

REACTIONS (5)
  - Back pain [Unknown]
  - Pain in extremity [Unknown]
  - Malaise [Unknown]
  - Device occlusion [Unknown]
  - Death [Fatal]

NARRATIVE: CASE EVENT DATE: 20150107
